FAERS Safety Report 12373805 (Version 1)
Quarter: 2016Q2

REPORT INFORMATION
  Report Type: Other
  Country: DE (occurrence: DE)
  Receive Date: 20160517
  Receipt Date: 20160517
  Transmission Date: 20160815
  Serious: Yes (Hospitalization)
  Sender: FDA-Public Use
  Company Number: DE-LUPIN PHARMACEUTICALS INC.-2015-02739

PATIENT
  Age: 48 Year
  Sex: Male
  Weight: 85 kg

DRUGS (7)
  1. QUETIAPINE. [Suspect]
     Active Substance: QUETIAPINE
     Route: 065
  2. BIPERIDEN [Suspect]
     Active Substance: BIPERIDEN
     Indication: SCHIZOAFFECTIVE DISORDER
     Route: 065
  3. QUETIAPINE. [Suspect]
     Active Substance: QUETIAPINE
     Indication: SCHIZOAFFECTIVE DISORDER
     Route: 065
  4. CHLORPROTHIXENE [Suspect]
     Active Substance: CHLORPROTHIXENE
     Indication: SCHIZOAFFECTIVE DISORDER
     Route: 065
  5. BENPERIDOL [Suspect]
     Active Substance: BENPERIDOL
     Route: 065
  6. CHLORPROTHIXENE [Suspect]
     Active Substance: CHLORPROTHIXENE
     Route: 065
  7. BENPERIDOL [Suspect]
     Active Substance: BENPERIDOL
     Indication: SCHIZOAFFECTIVE DISORDER
     Route: 065

REACTIONS (1)
  - Neuroleptic malignant syndrome [Recovered/Resolved]
